FAERS Safety Report 4984376-2 (Version None)
Quarter: 2006Q2

REPORT INFORMATION
  Report Type: 
  Country: None (occurrence: None)
  Receive Date: 20060427
  Receipt Date: 20060418
  Transmission Date: 20061013
  Serious: Yes (Other)
  Sender: FDA-Public Use
  Company Number: 2006AP01858

PATIENT
  Age: 74 Year
  Sex: Female

DRUGS (5)
  1. DIPRIVAN [Suspect]
     Indication: MAINTENANCE OF ANAESTHESIA
     Route: 042
     Dates: start: 20060411, end: 20060411
  2. ISEPACIN [Concomitant]
     Dates: start: 20060411
  3. PANALDINE [Concomitant]
     Route: 048
     Dates: start: 20060201
  4. ASPIRIN [Concomitant]
     Route: 048
     Dates: start: 20060201
  5. ALEVIATIN [Concomitant]
     Route: 048

REACTIONS (1)
  - HEPATIC FUNCTION ABNORMAL [None]
